FAERS Safety Report 9714918 (Version 1)
Quarter: 2013Q4

REPORT INFORMATION
  Report Type: Report from Study
  Country: CL (occurrence: CL)
  Receive Date: 20131126
  Receipt Date: 20131126
  Transmission Date: 20140711
  Serious: Yes (Hospitalization)
  Sender: FDA-Public Use
  Company Number: CL-US-EMD SERONO, INC.-7251100

PATIENT
  Sex: Male

DRUGS (1)
  1. REBIF [Suspect]
     Indication: MULTIPLE SCLEROSIS
     Dates: start: 20080801

REACTIONS (3)
  - Multiple sclerosis relapse [Unknown]
  - Stress [Unknown]
  - Inappropriate schedule of drug administration [Not Recovered/Not Resolved]
